FAERS Safety Report 12495162 (Version 6)
Quarter: 2017Q3

REPORT INFORMATION
  Report Type: Report from Study
  Country: FR (occurrence: FR)
  Receive Date: 20160624
  Receipt Date: 20170820
  Transmission Date: 20171127
  Serious: Yes (Death, Other)
  Sender: FDA-Public Use
  Company Number: PHHY2016FR084803

PATIENT
  Age: 55 Year
  Sex: Female

DRUGS (7)
  1. AFINITOR [Suspect]
     Active Substance: EVEROLIMUS
     Dosage: 7.5 MG, QD
     Route: 065
     Dates: start: 20160225, end: 20160227
  2. AFINITOR [Suspect]
     Active Substance: EVEROLIMUS
     Dosage: 5 MG, QD
     Route: 065
     Dates: start: 20160329, end: 20160426
  3. DIPROLENE [Concomitant]
     Active Substance: BETAMETHASONE DIPROPIONATE
     Indication: PSORIASIS
     Route: 065
  4. AFINITOR [Suspect]
     Active Substance: EVEROLIMUS
     Dosage: 5 MG, QD
     Route: 065
     Dates: start: 20160222, end: 20160224
  5. AFINITOR [Suspect]
     Active Substance: EVEROLIMUS
     Dosage: 10 MG, QD
     Route: 065
     Dates: start: 20160228, end: 20160329
  6. AFINITOR [Suspect]
     Active Substance: EVEROLIMUS
     Indication: BREAST CANCER
     Dosage: 2.5 MG, QD
     Route: 065
     Dates: start: 20160219, end: 20160221
  7. EXEMESTANE. [Concomitant]
     Active Substance: EXEMESTANE
     Indication: BREAST CANCER
     Dosage: 5 MG, QD
     Route: 065
     Dates: start: 20160219, end: 20160426

REACTIONS (12)
  - Rash [Unknown]
  - Anaemia [Recovered/Resolved]
  - Blood pressure decreased [Unknown]
  - Breast cancer [Fatal]
  - Malignant neoplasm progression [Fatal]
  - Hyperglycaemia [Not Recovered/Not Resolved]
  - Skin disorder [Unknown]
  - Skin fissures [Unknown]
  - Ageusia [Unknown]
  - Psoriasis [Recovered/Resolved]
  - Mucosal inflammation [Unknown]
  - Asthenia [Not Recovered/Not Resolved]

NARRATIVE: CASE EVENT DATE: 201602
